FAERS Safety Report 5253690-8 (Version None)
Quarter: 2007Q1

REPORT INFORMATION
  Report Type: 
  Country: None (occurrence: None)
  Receive Date: 20070226
  Receipt Date: 20070214
  Transmission Date: 20070707
  Serious: Yes (Hospitalization, Other)
  Sender: FDA-Public Use
  Company Number: 07H-163-0312010-00

PATIENT
  Age: 60 Year
  Sex: Female
  Weight: 58.0604 kg

DRUGS (8)
  1. EPINEPHRINE [Suspect]
     Indication: HAEMORRHAGE
     Dosage: MULTIPLE INJECTIONS, SCLERATHERAPY
     Dates: start: 20070125
  2. LEVOXYL [Concomitant]
  3. NEXIUM [Concomitant]
  4. METFORMIN HCL [Concomitant]
  5. CRESTOR [Concomitant]
  6. FESO4 (FERROUS SULFATE) [Concomitant]
  7. CALCITRIOL [Concomitant]
  8. CALCIUM (CALCIUM) [Concomitant]

REACTIONS (2)
  - GASTROINTESTINAL NECROSIS [None]
  - SEPSIS [None]
